FAERS Safety Report 25860085 (Version 1)
Quarter: 2025Q3

REPORT INFORMATION
  Report Type: Spontaneous
  Country: US (occurrence: US)
  Receive Date: 20250929
  Receipt Date: 20250929
  Transmission Date: 20251021
  Serious: Yes (Other)
  Sender: STRIDES
  Company Number: US-STRIDES ARCOLAB LIMITED-2025SP009883

PATIENT
  Age: 86 Year
  Sex: Female

DRUGS (10)
  1. PREDNISONE [Suspect]
     Active Substance: PREDNISONE
     Indication: Pemphigoid
     Route: 048
  2. TRIAMCINOLONE ACETONIDE [Suspect]
     Active Substance: TRIAMCINOLONE ACETONIDE
     Indication: Pemphigoid
     Route: 061
  3. NELVUTAMIG [Concomitant]
     Active Substance: NELVUTAMIG
     Indication: Metastatic neoplasm
     Route: 065
  4. NELVUTAMIG [Concomitant]
     Active Substance: NELVUTAMIG
     Indication: Soft tissue sarcoma
  5. NIVOLUMAB [Concomitant]
     Active Substance: NIVOLUMAB
     Indication: Metastatic neoplasm
     Route: 065
  6. NIVOLUMAB [Concomitant]
     Active Substance: NIVOLUMAB
     Indication: Soft tissue sarcoma
  7. RIBOCICLIB [Concomitant]
     Active Substance: RIBOCICLIB
     Indication: Metastatic neoplasm
     Route: 065
  8. RIBOCICLIB [Concomitant]
     Active Substance: RIBOCICLIB
     Indication: Soft tissue sarcoma
  9. ANASTROZOLE [Concomitant]
     Active Substance: ANASTROZOLE
     Indication: Metastatic neoplasm
     Route: 065
  10. ANASTROZOLE [Concomitant]
     Active Substance: ANASTROZOLE
     Indication: Soft tissue sarcoma

REACTIONS (1)
  - Drug ineffective for unapproved indication [Unknown]
